FAERS Safety Report 9245332 (Version 2)
Quarter: 2014Q1

REPORT INFORMATION
  Report Type: Report from Study
  Country: GB (occurrence: GB)
  Receive Date: 20130422
  Receipt Date: 20140224
  Transmission Date: 20141002
  Serious: Yes (Death, Other)
  Sender: FDA-Public Use
  Company Number: GB-ROCHE-1216499

PATIENT
  Age: 73 Year
  Sex: Female
  Weight: 49 kg

DRUGS (4)
  1. RITUXIMAB [Suspect]
     Indication: RHEUMATOID ARTHRITIS
     Dosage: ON 09/OCT/2012, SHE HAD DOSE OF RITUXIMAB PRIOR TO THE EVENT.
     Route: 065
     Dates: start: 20080730
  2. METHOTREXATE [Concomitant]
  3. SULPHASALAZINE [Concomitant]
  4. PLAQUENIL [Concomitant]

REACTIONS (2)
  - Subarachnoid haemorrhage [Unknown]
  - Pneumonia aspiration [Fatal]
